FAERS Safety Report 8305674-0 (Version None)
Quarter: 2012Q2

REPORT INFORMATION
  Report Type: 
  Country: None (occurrence: None)
  Receive Date: 20120423
  Receipt Date: 20120412
  Transmission Date: 20120825
  Serious: No
  Sender: FDA-Public Use
  Company Number: US-JNJFOC-20120406435

PATIENT
  Sex: Female
  Weight: 74.84 kg

DRUGS (4)
  1. XANAX [Concomitant]
     Indication: ANXIETY
     Route: 048
     Dates: start: 20000101
  2. FENTANYL-100 [Suspect]
     Indication: NERVOUS SYSTEM DISORDER
     Dosage: NDC#07781-7244-55
     Route: 062
  3. OXYCODONE HCL [Concomitant]
     Indication: BREAKTHROUGH PAIN
     Dosage: AS NEEDED
     Route: 048
  4. FENTANYL-100 [Suspect]
     Indication: BONE PAIN
     Dosage: NDC#07781-7244-55
     Route: 062

REACTIONS (2)
  - PRODUCT QUALITY ISSUE [None]
  - WRONG TECHNIQUE IN DRUG USAGE PROCESS [None]
